FAERS Safety Report 15258553 (Version 1)
Quarter: 2018Q3

REPORT INFORMATION
  Report Type: Spontaneous
  Country: DE (occurrence: DE)
  Receive Date: 20180809
  Receipt Date: 20180809
  Transmission Date: 20181010
  Serious: Yes (Other)
  Sender: FDA-Public Use
  Company Number: DE-TEVA-2018-DE-937070

PATIENT
  Age: 62 Year
  Sex: Male

DRUGS (8)
  1. OXYCODONE HYDROCHLORIDE / NALOXONE HYDROCHLORIDE [Suspect]
     Active Substance: NALOXONE HYDROCHLORIDE\OXYCODONE HYDROCHLORIDE
     Indication: BACK PAIN
     Dosage: 40/20 MG, BID (3 SINGLE DOSES IN TOTAL)
     Route: 048
     Dates: start: 20180119, end: 20180120
  2. RANITIDIN [Concomitant]
     Active Substance: RANITIDINE HYDROCHLORIDE
     Dosage: 300 UNK, BID
     Route: 048
     Dates: start: 2013
  3. DULOXETINE. [Concomitant]
     Active Substance: DULOXETINE
     Indication: ANXIETY DISORDER
     Dosage: 30 UNK, DAILY
     Route: 065
     Dates: start: 2017
  4. XARELTO [Concomitant]
     Active Substance: RIVAROXABAN
     Dosage: 15 UNK, DAILY
     Route: 065
     Dates: start: 2014
  5. DULOXETINE. [Concomitant]
     Active Substance: DULOXETINE
     Indication: DEPRESSION
  6. AMLODIPIN                          /00972401/ [Concomitant]
     Active Substance: AMLODIPINE BESYLATE
     Dosage: 5 UNK, DAILY
     Route: 065
     Dates: start: 2012
  7. METOPROLOL SUCCINATE. [Concomitant]
     Active Substance: METOPROLOL SUCCINATE
     Dosage: 47.5 UNK, BID
     Route: 065
     Dates: start: 2010
  8. RAMIPRIL. [Concomitant]
     Active Substance: RAMIPRIL
     Dosage: 5/25, DAILY
     Route: 065
     Dates: start: 2013

REACTIONS (4)
  - Headache [Recovered/Resolved]
  - Abdominal pain upper [Recovered/Resolved]
  - Vomiting [Recovered/Resolved]
  - Diarrhoea [Recovered/Resolved]

NARRATIVE: CASE EVENT DATE: 20180119
